FAERS Safety Report 7351274-9 (Version None)
Quarter: 2011Q1

REPORT INFORMATION
  Report Type: 
  Country: None (occurrence: None)
  Receive Date: 20110314
  Receipt Date: 20110309
  Transmission Date: 20110831
  Serious: Yes (Other)
  Sender: FDA-Public Use
  Company Number: US-MYLANLABS-2011S1004396

PATIENT
  Age: 12 Year
  Sex: Female

DRUGS (2)
  1. AMNESTEEM [Suspect]
     Indication: ACNE
     Dates: start: 20110204, end: 20110201
  2. AMNESTEEM [Suspect]
     Dates: start: 20110225, end: 20110228

REACTIONS (1)
  - BRAIN MASS [None]
